FAERS Safety Report 13312538 (Version 1)
Quarter: 2017Q1

REPORT INFORMATION
  Report Type: Spontaneous
  Country: IT (occurrence: IT)
  Receive Date: 20170309
  Receipt Date: 20170309
  Transmission Date: 20170428
  Serious: Yes (Other)
  Sender: FDA-Public Use
  Company Number: IT-OTSUKA-2017_004289

PATIENT
  Age: 37 Year
  Sex: Male

DRUGS (3)
  1. ABILIFY MAINTENA [Suspect]
     Active Substance: ARIPIPRAZOLE
     Indication: BIPOLAR DISORDER
  2. ABILIFY MAINTENA [Suspect]
     Active Substance: ARIPIPRAZOLE
     Indication: MANIA
     Dosage: 400 MG, QM (MONTHLY)
     Route: 030
  3. DEPAKIN CHRONO [Concomitant]
     Active Substance: VALPROIC ACID
     Indication: MANIA
     Dosage: 3 OF 500 MG, UNK
     Route: 065

REACTIONS (6)
  - Gambling disorder [Not Recovered/Not Resolved]
  - Bipolar disorder [Unknown]
  - Mania [Unknown]
  - Weight increased [Not Recovered/Not Resolved]
  - Thrombophlebitis [Not Recovered/Not Resolved]
  - Product use issue [Unknown]
